FAERS Safety Report 9475446 (Version 3)
Quarter: 2014Q2

REPORT INFORMATION
  Report Type: Spontaneous
  Country: US (occurrence: None)
  Receive Date: 20130821
  Receipt Date: 20140609
  Transmission Date: 20141212
  Serious: Yes (Other)
  Sender: FDA-Public Use
  Company Number: AXC-2013-000393

PATIENT
  Age: 36 Year
  Sex: Male
  Weight: 72.6 kg

DRUGS (2)
  1. PYLERA (BISMUTH SUBCITRATE POTASSIUM, METRONIDAZOLE, TETRACYCLINE HYDROCHLORIDE) CAPSULE [Suspect]
     Indication: HELICOBACTER INFECTION
     Route: 048
     Dates: start: 20130729, end: 20130807
  2. NEXIUM (ESOMEPRAZOLE SODIUM) [Concomitant]

REACTIONS (30)
  - Coordination abnormal [None]
  - Balance disorder [None]
  - Muscle twitching [None]
  - Nausea [None]
  - Diarrhoea [None]
  - Chromaturia [None]
  - Muscular weakness [None]
  - Visual impairment [None]
  - Abdominal pain [None]
  - Pain [None]
  - Weight decreased [None]
  - Insomnia [None]
  - Muscle atrophy [None]
  - Lip dry [None]
  - Pollakiuria [None]
  - Dyskinesia [None]
  - Headache [None]
  - Disorientation [None]
  - Paraesthesia [None]
  - Pain [None]
  - Nausea [None]
  - Diarrhoea [None]
  - Faeces discoloured [None]
  - Chromaturia [None]
  - Decreased appetite [None]
  - Weight decreased [None]
  - Visual acuity reduced [None]
  - Malaise [None]
  - Insomnia [None]
  - Middle insomnia [None]
